FAERS Safety Report 13140474 (Version 9)
Quarter: 2018Q2

REPORT INFORMATION
  Report Type: Report from Study
  Country: US (occurrence: US)
  Receive Date: 20170123
  Receipt Date: 20180607
  Transmission Date: 20180711
  Serious: Yes (Hospitalization)
  Sender: FDA-Public Use
  Company Number: US-B.I. PHARMACEUTICALS,INC./RIDGEFIELD-2015-BI-66551BP

PATIENT
  Age: 73 Year
  Sex: Female

DRUGS (2)
  1. OFEV [Suspect]
     Active Substance: NINTEDANIB
     Indication: IDIOPATHIC PULMONARY FIBROSIS
     Route: 048
     Dates: start: 20150928
  2. OFEV [Suspect]
     Active Substance: NINTEDANIB
     Route: 048

REACTIONS (39)
  - Abdominal pain upper [Unknown]
  - Dyspnoea exertional [Unknown]
  - Alopecia [Not Recovered/Not Resolved]
  - Fatigue [Unknown]
  - Headache [Unknown]
  - Diarrhoea [Unknown]
  - Rhinorrhoea [Unknown]
  - Haemorrhage [Recovered/Resolved]
  - Eating disorder [Unknown]
  - Cough [Not Recovered/Not Resolved]
  - Weight increased [Unknown]
  - Depression [Unknown]
  - Muscle spasms [Unknown]
  - Abdominal pain upper [Not Recovered/Not Resolved]
  - Alopecia [Not Recovered/Not Resolved]
  - Asthenia [Not Recovered/Not Resolved]
  - Diarrhoea [Unknown]
  - Sinusitis [Unknown]
  - Faeces discoloured [Unknown]
  - Alopecia [Unknown]
  - Diarrhoea [Not Recovered/Not Resolved]
  - Nausea [Not Recovered/Not Resolved]
  - Nausea [Recovered/Resolved]
  - Nasal discomfort [Unknown]
  - Peripheral swelling [Unknown]
  - Nausea [Unknown]
  - Productive cough [Unknown]
  - Dysphonia [Unknown]
  - Vomiting [Unknown]
  - Nasal ulcer [Unknown]
  - Increased viscosity of upper respiratory secretion [Unknown]
  - Blood pressure increased [Unknown]
  - Blood pressure abnormal [Unknown]
  - Dysphagia [Unknown]
  - Abdominal pain upper [Recovered/Resolved]
  - Diarrhoea [Recovered/Resolved]
  - Dyspnoea [Unknown]
  - Fatigue [Not Recovered/Not Resolved]
  - Alopecia [Not Recovered/Not Resolved]

NARRATIVE: CASE EVENT DATE: 20160101
